FAERS Safety Report 4417828-4 (Version None)
Quarter: 2004Q3

REPORT INFORMATION
  Report Type: 
  Country: None (occurrence: None)
  Receive Date: 20040807
  Receipt Date: 20040803
  Transmission Date: 20050211
  Serious: Yes (Hospitalization)
  Sender: FDA-Public Use
  Company Number: US-MERCK-0408USA00253

PATIENT
  Age: 59 Year
  Sex: Male

DRUGS (16)
  1. VENTOLIN [Concomitant]
     Route: 065
  2. FOSAMAX [Suspect]
     Indication: OSTEOPOROSIS
     Route: 048
     Dates: start: 20040802
  3. CALCIUM (UNSPECIFIED) [Concomitant]
     Route: 065
  4. FLEXERIL [Concomitant]
     Route: 065
  5. NEORAL [Concomitant]
     Route: 065
  6. DIGOXIN [Concomitant]
     Route: 065
  7. ZETIA [Concomitant]
     Route: 065
  8. FLOVENT [Concomitant]
     Route: 065
  9. CELLCEPT [Concomitant]
     Route: 065
  10. PROTONIX [Concomitant]
     Route: 065
  11. PRAVACHOL [Concomitant]
     Route: 065
  12. PREDNISONE [Concomitant]
     Route: 065
  13. MIACALCIN [Concomitant]
     Route: 065
  14. SEREVENT [Concomitant]
     Route: 065
  15. VERAPAMIL [Concomitant]
     Route: 065
  16. COUMADIN [Concomitant]
     Route: 065

REACTIONS (2)
  - ABDOMINAL PAIN [None]
  - PYREXIA [None]
